FAERS Safety Report 4316365-5 (Version None)
Quarter: 2004Q1

REPORT INFORMATION
  Report Type: 
  Country: None (occurrence: None)
  Receive Date: 20040312
  Receipt Date: 20040312
  Transmission Date: 20041129
  Serious: Yes (Hospitalization)
  Sender: FDA-Public Use
  Company Number: None

PATIENT
  Age: 47 Year
  Sex: Female
  Weight: 48.6 kg

DRUGS (13)
  1. TAXOL [Suspect]
     Indication: CERVIX CARCINOMA
     Dosage: 110 MG/M2 EVERY 3 WE INTRAVENOUS
     Route: 042
     Dates: start: 20040223, end: 20040224
  2. CISPLATIN [Suspect]
     Dosage: 50 MG/M2 EVERY 3 WE INTRAVENOUS
     Route: 042
     Dates: start: 20040224, end: 20040224
  3. DURAGESIC [Concomitant]
  4. OXYCONTIN [Concomitant]
  5. CELEBREX [Concomitant]
  6. REGLAN [Concomitant]
  7. ATIVAN [Concomitant]
  8. EMEND [Concomitant]
  9. LOVENOX [Concomitant]
  10. COLACE [Concomitant]
  11. DECADRON [Concomitant]
  12. BENADRYL [Concomitant]
  13. PEPCID [Concomitant]

REACTIONS (3)
  - ABDOMINAL PAIN [None]
  - DISEASE PROGRESSION [None]
  - HYDRONEPHROSIS [None]
